FAERS Safety Report 15018175 (Version 2)
Quarter: 2018Q4

REPORT INFORMATION
  Report Type: Spontaneous
  Country: JP (occurrence: JP)
  Receive Date: 20180615
  Receipt Date: 20181015
  Transmission Date: 20190204
  Serious: Yes (Hospitalization, Other)
  Sender: FDA-Public Use
  Company Number: JP-DSJP-DSJ-2018-122743

PATIENT

DRUGS (10)
  1. LIXIANA TABLETS [Suspect]
     Active Substance: EDOXABAN TOSYLATE
     Indication: MYOCARDIAL INFARCTION
     Dosage: 60 MG, QD
     Route: 048
  2. ALEVIATIN                          /00017401/ [Concomitant]
     Active Substance: PHENYTOIN SODIUM
     Dosage: 100 MG, BID
     Route: 048
  3. NIKORANMART [Concomitant]
     Active Substance: NICORANDIL
     Dosage: 5 MG, TID
     Route: 048
  4. ZYRTEC [Concomitant]
     Active Substance: CETIRIZINE HYDROCHLORIDE
     Dosage: 10 MG, QD
     Route: 048
  5. PANALDINE [Concomitant]
     Active Substance: TICLOPIDINE HYDROCHLORIDE
     Dosage: 100 MG, BID
     Route: 048
  6. DEPROMEL                           /00615202/ [Concomitant]
     Active Substance: FLUVOXAMINE MALEATE
     Dosage: 25 MG, QD
     Route: 048
  7. GRAMALIL [Concomitant]
     Active Substance: TIAPRIDE HYDROCHLORIDE
     Dosage: 25 MG, QD
     Route: 048
  8. MYSTAN [Concomitant]
     Active Substance: CLOBAZAM
     Dosage: 5 MG, QD
     Route: 048
  9. FERROUS SULFATE. [Concomitant]
     Active Substance: FERROUS SULFATE
     Dosage: 105 MG, BID
     Route: 048
  10. ALFAROL [Concomitant]
     Active Substance: ALFACALCIDOL
     Dosage: 0.25 ?G, BID
     Route: 048

REACTIONS (4)
  - Anaemia [Unknown]
  - Ischaemic enteritis [Recovering/Resolving]
  - Upper gastrointestinal haemorrhage [Recovering/Resolving]
  - Portal venous gas [Recovering/Resolving]

NARRATIVE: CASE EVENT DATE: 20150607
